FAERS Safety Report 12496148 (Version 1)
Quarter: 2016Q2

REPORT INFORMATION
  Report Type: Spontaneous
  Country: PE (occurrence: PE)
  Receive Date: 20160624
  Receipt Date: 20160624
  Transmission Date: 20160815
  Serious: Yes (Other)
  Sender: FDA-Public Use
  Company Number: PE-PFIZER INC-2016305590

PATIENT
  Age: 89 Year
  Sex: Female

DRUGS (1)
  1. XALATAN [Suspect]
     Active Substance: LATANOPROST
     Dosage: 1 GTT ON THE RIGHT EYE
     Route: 047

REACTIONS (2)
  - Hypoacusis [Not Recovered/Not Resolved]
  - Eye disorder [Not Recovered/Not Resolved]
